FAERS Safety Report 8799710 (Version 2)
Quarter: 2012Q4

REPORT INFORMATION
  Report Type: 
  Country: US (occurrence: US)
  Receive Date: 20120919
  Receipt Date: 20121003
  Transmission Date: 20130627
  Serious: No
  Sender: FDA-Public Use
  Company Number: US-009507513-1209USA005683

PATIENT
  Sex: Female

DRUGS (2)
  1. NASONEX [Suspect]
     Indication: EPISTAXIS
     Dosage: 50 Microgram, bid
     Route: 045
     Dates: end: 201203
  2. BROVANA [Concomitant]

REACTIONS (1)
  - Nasal discomfort [Recovered/Resolved]
